FAERS Safety Report 8161508-9 (Version None)
Quarter: 2012Q1

REPORT INFORMATION
  Report Type: 
  Country: None (occurrence: None)
  Receive Date: 20120224
  Receipt Date: 20120221
  Transmission Date: 20120608
  Serious: No
  Sender: FDA-Public Use
  Company Number: US-PFIZER INC-2011107261

PATIENT
  Sex: Female
  Weight: 63 kg

DRUGS (6)
  1. MECLIZINE [Concomitant]
  2. ASACOL [Concomitant]
  3. AROMASIN [Suspect]
     Indication: BREAST CANCER
     Dosage: 25 MG, 1X/DAY
     Route: 048
     Dates: start: 20080501, end: 20081201
  4. AROMASIN [Suspect]
     Dosage: 25 MG, 1X/DAY
     Route: 048
  5. LUNESTA [Concomitant]
  6. VALACICLOVIR [Concomitant]

REACTIONS (5)
  - ARTHRALGIA [None]
  - HOT FLUSH [None]
  - MYALGIA [None]
  - INFLUENZA [None]
  - INSOMNIA [None]
